FAERS Safety Report 9880323 (Version 1)
Quarter: 2014Q1

REPORT INFORMATION
  Report Type: Spontaneous
  Country: US (occurrence: US)
  Receive Date: 20140207
  Receipt Date: 20140207
  Transmission Date: 20141002
  Serious: Yes (Death)
  Sender: FDA-Public Use
  Company Number: US-BEH-2014040568

PATIENT
  Age: 63 Year
  Sex: Female

DRUGS (1)
  1. IVIG [Suspect]
     Indication: IMMUNODEFICIENCY COMMON VARIABLE
     Route: 042

REACTIONS (2)
  - Sepsis [Fatal]
  - Renal failure acute [Fatal]
